FAERS Safety Report 22022616 (Version 2)
Quarter: 2023Q1

REPORT INFORMATION
  Report Type: Spontaneous
  Country: US (occurrence: US)
  Receive Date: 20230222
  Receipt Date: 20230320
  Transmission Date: 20230418
  Serious: No
  Sender: FDA-Public Use
  Company Number: US-TEVA-2023-US-2853380

PATIENT
  Age: 70 Year
  Sex: Male

DRUGS (2)
  1. TESTOSTERONE [Suspect]
     Active Substance: TESTOSTERONE
     Indication: Product used for unknown indication
     Route: 065
     Dates: start: 202210
  2. TESTOSTERONE [Suspect]
     Active Substance: TESTOSTERONE
     Route: 065

REACTIONS (8)
  - Eye irritation [Unknown]
  - Thermal burn [Unknown]
  - Product quality issue [Unknown]
  - Product odour abnormal [Unknown]
  - Drug hypersensitivity [Recovered/Resolved]
  - Cardiac disorder [Recovered/Resolved]
  - Dyspepsia [Recovered/Resolved]
  - Illness [Recovered/Resolved]
